FAERS Safety Report 9910290 (Version 1)
Quarter: 2014Q1

REPORT INFORMATION
  Report Type: Spontaneous
  Country: US (occurrence: US)
  Receive Date: 20140219
  Receipt Date: 20140219
  Transmission Date: 20141002
  Serious: No
  Sender: FDA-Public Use
  Company Number: US-ROXANE LABORATORIES, INC.-2014-RO-00241RO

PATIENT
  Age: 91 Year
  Sex: Male

DRUGS (1)
  1. FLUTICASONE [Suspect]
     Indication: NASAL CONGESTION
     Route: 045
     Dates: start: 20140211, end: 20140212

REACTIONS (1)
  - Epistaxis [Recovered/Resolved]
